FAERS Safety Report 4288952-4 (Version None)
Quarter: 2004Q1

REPORT INFORMATION
  Report Type: 
  Country: None (occurrence: None)
  Receive Date: 20040209
  Receipt Date: 20011002
  Transmission Date: 20041129
  Serious: Yes (Death, Other)
  Sender: FDA-Public Use
  Company Number: US-BRISTOL-MYERS SQUIBB COMPANY-11031671

PATIENT
  Sex: Female

DRUGS (8)
  1. STADOL [Suspect]
     Route: 045
     Dates: start: 19970418
  2. STADOL [Suspect]
     Dosage: ROUTE OF ADMINISTRATION:  INJECTION
  3. IMIPRAMINE [Concomitant]
  4. LORAZEPAM [Concomitant]
  5. PROMETHAZINE [Concomitant]
  6. METHADONE HCL [Concomitant]
  7. HYDROCODONE + ACETAMINOPHEN [Concomitant]
  8. NUBAIN [Concomitant]

REACTIONS (2)
  - DEATH [None]
  - DEPENDENCE [None]
